FAERS Safety Report 13122445 (Version 5)
Quarter: 2018Q1

REPORT INFORMATION
  Report Type: Spontaneous
  Country: DE (occurrence: DE)
  Receive Date: 20170117
  Receipt Date: 20180305
  Transmission Date: 20180508
  Serious: Yes (Life-Threatening, Other)
  Sender: FDA-Public Use
  Company Number: DE-B.I. PHARMACEUTICALS,INC./RIDGEFIELD-2017-BI-002576

PATIENT
  Age: 74 Year
  Sex: Female

DRUGS (4)
  1. STATIN [Concomitant]
     Active Substance: UNSPECIFIED INGREDIENT
     Indication: PRODUCT USED FOR UNKNOWN INDICATION
     Route: 065
  2. JARDIANCE [Suspect]
     Active Substance: EMPAGLIFLOZIN
     Indication: PRODUCT USED FOR UNKNOWN INDICATION
     Route: 065
  3. TRAMADOL. [Suspect]
     Active Substance: TRAMADOL
     Indication: PRODUCT USED FOR UNKNOWN INDICATION
     Route: 065
  4. ASPIRIN. [Concomitant]
     Active Substance: ASPIRIN
     Indication: PRODUCT USED FOR UNKNOWN INDICATION
     Route: 065

REACTIONS (10)
  - Torsade de pointes [Unknown]
  - Intentional overdose [Unknown]
  - Blood glucose increased [Unknown]
  - Ventricular fibrillation [Unknown]
  - Somnolence [Unknown]
  - Pneumonia [Unknown]
  - Suicide attempt [Unknown]
  - Hemiplegia [Unknown]
  - White blood cell count increased [Unknown]
  - Hypoglycaemia [Recovered/Resolved]
